FAERS Safety Report 23697196 (Version 3)
Quarter: 2024Q4

REPORT INFORMATION
  Report Type: Spontaneous
  Country: JP (occurrence: JP)
  Receive Date: 20240402
  Receipt Date: 20241112
  Transmission Date: 20250115
  Serious: Yes (Other)
  Sender: GENMAB
  Company Number: JP-GENMAB-2024-01005

PATIENT
  Age: 8 Decade
  Sex: Female

DRUGS (9)
  1. EPKINLY [Suspect]
     Active Substance: EPCORITAMAB-BYSP
     Indication: B-cell lymphoma
     Dosage: 0.16 MILLIGRAM, SINGLE
     Route: 065
     Dates: start: 20240318, end: 20240318
  2. EPKINLY [Suspect]
     Active Substance: EPCORITAMAB-BYSP
     Dosage: 0.8 MILLIGRAM, SINGLE
     Route: 065
     Dates: start: 20240325, end: 20240325
  3. OLMESARTAN [Concomitant]
     Active Substance: OLMESARTAN
  4. AMLODIPINE [Concomitant]
     Active Substance: AMLODIPINE BESYLATE
  5. VONOPRAZAN FUMARATE [Concomitant]
     Active Substance: VONOPRAZAN FUMARATE
  6. ENTECAVIR [Concomitant]
     Active Substance: ENTECAVIR
  7. PRIMOBOLAN S [Concomitant]
  8. SULFAMETHOXAZOLE\TRIMETHOPRIM [Concomitant]
     Active Substance: SULFAMETHOXAZOLE\TRIMETHOPRIM
  9. MAGNESIUM OXIDE [Concomitant]
     Active Substance: MAGNESIUM OXIDE

REACTIONS (2)
  - Decreased immune responsiveness [Unknown]
  - Cytomegalovirus chorioretinitis [Recovered/Resolved]

NARRATIVE: CASE EVENT DATE: 20240301
